FAERS Safety Report 7737700-1 (Version None)
Quarter: 2011Q3

REPORT INFORMATION
  Report Type: 
  Country: None (occurrence: None)
  Receive Date: 20110902
  Receipt Date: 20110819
  Transmission Date: 20111222
  Serious: Yes (Hospitalization)
  Sender: FDA-Public Use
  Company Number: 2011MA012612

PATIENT
  Age: 76 Year
  Sex: Female

DRUGS (20)
  1. SIMVASTATIN [Concomitant]
  2. LACTULOSE [Concomitant]
  3. FOLIC ACID [Concomitant]
  4. CALCIUM CARBONATE [Concomitant]
  5. NITROLINGUAL [Concomitant]
  6. ACETAMINOPHEN [Concomitant]
  7. DUROFERON [Concomitant]
  8. SANDOZ [Concomitant]
  9. C-VITAMIN [Concomitant]
  10. ASPIRIN [Concomitant]
  11. GABAPENTIN [Suspect]
     Indication: LUNG ADENOCARCINOMA
     Dosage: 1.5 G, PO
     Route: 048
     Dates: start: 20110511, end: 20110529
  12. ASASANTIN SLOW RELEASE [Concomitant]
  13. DIPYRIDAMOLE [Concomitant]
  14. SODIUM PICOSULFATE [Concomitant]
  15. OMEPRAZOLE [Concomitant]
  16. METOPROLOL TARTRATE [Concomitant]
  17. MORPHINE [Suspect]
     Indication: LUNG ADENOCARCINOMA
     Dosage: 40 MG, PO
     Route: 048
     Dates: start: 20110318, end: 20110529
  18. FELODIPINE [Concomitant]
  19. BEHEPAN [Concomitant]
  20. COLAXORAL [Concomitant]

REACTIONS (1)
  - DEPRESSED LEVEL OF CONSCIOUSNESS [None]
